FAERS Safety Report 17220245 (Version 1)
Quarter: 2019Q4

REPORT INFORMATION
  Report Type: Spontaneous
  Country: US (occurrence: US)
  Receive Date: 20191231
  Receipt Date: 20191231
  Transmission Date: 20200122
  Serious: Yes (Death, Other)
  Sender: FDA-Public Use
  Company Number: US-PFIZER INC-2019558972

PATIENT
  Age: 62 Year
  Sex: Female
  Weight: 38.56 kg

DRUGS (1)
  1. DILANTIN [Suspect]
     Active Substance: PHENYTOIN
     Indication: SEIZURE
     Dosage: 400 MG, 1X/DAY(AT BEDTIME)
     Route: 048

REACTIONS (2)
  - Death [Fatal]
  - Throat cancer [Unknown]

NARRATIVE: CASE EVENT DATE: 201904
